FAERS Safety Report 18222188 (Version 1)
Quarter: 2020Q3

REPORT INFORMATION
  Report Type: Spontaneous
  Country: US (occurrence: US)
  Receive Date: 20200902
  Receipt Date: 20200902
  Transmission Date: 20201103
  Serious: Yes (Life-Threatening, Other)
  Sender: FDA-Public Use
  Company Number: None

PATIENT
  Age: 55 Year
  Sex: Male
  Weight: 125 kg

DRUGS (4)
  1. REMDESIVIR (EUA) (REMDESIVIR (EUA)) [Suspect]
     Active Substance: REMDESIVIR
     Indication: COVID-19
     Dosage: ?          OTHER ROUTE:IV?
     Dates: start: 20200705, end: 20200714
  2. REMDESIVIR (EUA) (REMDESIVIR (EUA)) [Suspect]
     Active Substance: REMDESIVIR
     Indication: UPPER RESPIRATORY TRACT INFECTION
     Dosage: ?          OTHER ROUTE:IV?
     Dates: start: 20200705, end: 20200715
  3. REMDESIVIR (EUA) (REMDESIVIR (EUA)) [Suspect]
     Active Substance: REMDESIVIR
     Indication: CORONAVIRUS INFECTION
     Dosage: ?          OTHER ROUTE:IV?
     Dates: start: 20200705, end: 20200715
  4. REMDESIVIR (EUA) (REMDESIVIR (EUA)) [Suspect]
     Active Substance: REMDESIVIR
     Indication: UPPER RESPIRATORY TRACT INFECTION
     Dosage: ?          OTHER ROUTE:IV?
     Dates: start: 20200705, end: 20200714

REACTIONS (7)
  - Hepatic enzyme increased [None]
  - Alanine aminotransferase increased [None]
  - Cytokine storm [None]
  - Blood bilirubin increased [None]
  - Systemic inflammatory response syndrome [None]
  - Aspartate aminotransferase increased [None]
  - Blood alkaline phosphatase increased [None]

NARRATIVE: CASE EVENT DATE: 20200707
